FAERS Safety Report 15392610 (Version 1)
Quarter: 2018Q3

REPORT INFORMATION
  Report Type: Spontaneous
  Country: US (occurrence: US)
  Receive Date: 20180911
  Receipt Date: 20180911
  Transmission Date: 20181010
  Serious: No
  Sender: FDA-Public Use
  Company Number: None

PATIENT
  Age: 64 Year
  Sex: Male

DRUGS (1)
  1. TACROLIMUS CAP 0.5MG [Suspect]
     Active Substance: TACROLIMUS
     Indication: TRANSPLANT
     Dates: start: 20180716

REACTIONS (2)
  - Tremor [None]
  - Dysgraphia [None]

NARRATIVE: CASE EVENT DATE: 20180910
